FAERS Safety Report 7550360-8 (Version None)
Quarter: 2011Q2

REPORT INFORMATION
  Report Type: 
  Country: None (occurrence: None)
  Receive Date: 20110615
  Receipt Date: 20110607
  Transmission Date: 20111010
  Serious: Yes (Other)
  Sender: FDA-Public Use
  Company Number: US-US-EMD SERONO, INC.-7055709

PATIENT
  Sex: Female
  Weight: 96 kg

DRUGS (4)
  1. REBIF [Suspect]
     Route: 058
     Dates: start: 20110301, end: 20110301
  2. REBIF [Suspect]
     Indication: MULTIPLE SCLEROSIS
     Route: 058
     Dates: start: 20050526, end: 20101101
  3. REBIF [Suspect]
     Route: 058
     Dates: start: 20110301
  4. SYNTHROID [Concomitant]
     Indication: HYPOTHYROIDISM

REACTIONS (4)
  - FACE PRESENTATION [None]
  - JOINT SWELLING [None]
  - INSOMNIA [None]
  - DRUG EXPOSURE DURING PREGNANCY [None]
